FAERS Safety Report 17098791 (Version 1)
Quarter: 2019Q4

REPORT INFORMATION
  Report Type: Spontaneous
  Country: NL (occurrence: NL)
  Receive Date: 20191202
  Receipt Date: 20191202
  Transmission Date: 20200122
  Serious: Yes (Other)
  Sender: FDA-Public Use
  Company Number: NL-SA-2019SA327394

PATIENT
  Age: 50 Year
  Sex: Male
  Weight: 78 kg

DRUGS (8)
  1. FERROFUMARAAT [Concomitant]
  2. RIFINAH [Suspect]
     Active Substance: ISONIAZID\RIFAMPIN
     Indication: TUBERCULOSIS
     Dosage: 1 DF, Q12H (2X PER DAY)
     Route: 048
     Dates: start: 20190828, end: 20191011
  3. COLECALCIFEROL [Concomitant]
     Active Substance: CHOLECALCIFEROL
  4. TELMISARTAN. [Concomitant]
     Active Substance: TELMISARTAN
  5. LERCANIDIPINE [Concomitant]
     Active Substance: LERCANIDIPINE
  6. ALLOPURINOL. [Concomitant]
     Active Substance: ALLOPURINOL
  7. ALFACALCIDOL [Concomitant]
     Active Substance: ALFACALCIDOL
  8. GLIMEPIRIDE. [Concomitant]
     Active Substance: GLIMEPIRIDE

REACTIONS (4)
  - Vision blurred [Not Recovered/Not Resolved]
  - Feeling abnormal [Not Recovered/Not Resolved]
  - Diabetes mellitus inadequate control [Not Recovered/Not Resolved]
  - Eye swelling [Not Recovered/Not Resolved]

NARRATIVE: CASE EVENT DATE: 20190830
